FAERS Safety Report 13440023 (Version 2)
Quarter: 2017Q2

REPORT INFORMATION
  Report Type: Report from Study
  Country: None (occurrence: BR)
  Receive Date: 20170413
  Receipt Date: 20170503
  Transmission Date: 20170830
  Serious: Yes (Other)
  Sender: FDA-Public Use
  Company Number: BR-ABBVIE-17P-020-1943391-00

PATIENT
  Sex: Female

DRUGS (1)
  1. SYNTHROID [Suspect]
     Active Substance: LEVOTHYROXINE SODIUM
     Indication: HORMONE LEVEL ABNORMAL
     Dosage: 50 MCG, MORNING/FASTING
     Route: 048
     Dates: end: 20170318

REACTIONS (2)
  - Maternal exposure during pregnancy [Unknown]
  - Premature rupture of membranes [Unknown]
